FAERS Safety Report 20709661 (Version 1)
Quarter: 2022Q2

REPORT INFORMATION
  Report Type: Spontaneous
  Country: IN (occurrence: IN)
  Receive Date: 20220414
  Receipt Date: 20220414
  Transmission Date: 20220721
  Serious: Yes (Death)
  Sender: FDA-Public Use
  Company Number: IN-AMNEAL PHARMACEUTICALS-2022-AMRX-00943

PATIENT
  Age: 60 Year
  Sex: Female

DRUGS (3)
  1. METHOTREXATE [Suspect]
     Active Substance: METHOTREXATE
     Indication: Product used for unknown indication
     Dosage: UNK
     Route: 048
  2. IOHEXOL [Concomitant]
     Active Substance: IOHEXOL
     Indication: Diagnostic procedure
     Dosage: 50 MILLILITER (ONE DAY PRIOR TO SURGERY)
     Route: 042
  3. IOHEXOL [Concomitant]
     Active Substance: IOHEXOL
     Dosage: 60 MILLILITER (SECOND CONTRAST DOSE ON THE FIRST POSTOPERATIVE DAY)
     Route: 042

REACTIONS (2)
  - Multiple organ dysfunction syndrome [Fatal]
  - Toxicity to various agents [Fatal]
